FAERS Safety Report 25486499 (Version 1)
Quarter: 2025Q2

REPORT INFORMATION
  Report Type: Spontaneous
  Country: US (occurrence: US)
  Receive Date: 20250627
  Receipt Date: 20250627
  Transmission Date: 20250716
  Serious: Yes (Hospitalization, Other)
  Sender: NOVO NORDISK
  Company Number: US-NOVOPROD-1466078

PATIENT
  Sex: Male

DRUGS (2)
  1. OZEMPIC [Suspect]
     Active Substance: SEMAGLUTIDE
     Indication: Diabetes mellitus
     Dosage: 1MG ONCE A WEEK
  2. NovoFine Plus 4mm (32G) [Concomitant]
     Indication: Diabetes mellitus

REACTIONS (3)
  - Urinary tract infection [Recovering/Resolving]
  - Botulinum toxin injection [Recovering/Resolving]
  - Bladder repair [Recovering/Resolving]

NARRATIVE: CASE EVENT DATE: 20240901
